FAERS Safety Report 8107532-3 (Version None)
Quarter: 2012Q1

REPORT INFORMATION
  Report Type: 
  Country: None (occurrence: None)
  Receive Date: 20120202
  Receipt Date: 20120111
  Transmission Date: 20120608
  Serious: Yes (Other)
  Sender: FDA-Public Use
  Company Number: US-ROCHE-1029356

PATIENT

DRUGS (3)
  1. HERCEPTIN [Suspect]
     Dosage: EVERY 30 MINUTES AT THIRD DOSE
     Dates: end: 20111116
  2. HERCEPTIN [Suspect]
     Dosage: MAINTENANCE DOSE OVER 90 MINUTES
  3. HERCEPTIN [Suspect]
     Indication: BILE DUCT CANCER
     Dosage: LOADING DOSE OVER 90 MINUTES
     Route: 042

REACTIONS (1)
  - DISEASE PROGRESSION [None]
